FAERS Safety Report 13767918 (Version 1)
Quarter: 2017Q3

REPORT INFORMATION
  Report Type: Spontaneous
  Country: US (occurrence: US)
  Receive Date: 20170719
  Receipt Date: 20170719
  Transmission Date: 20171127
  Serious: No
  Sender: FDA-Public Use
  Company Number: US-PFIZER INC-2017311625

PATIENT
  Age: 55 Year
  Sex: Female

DRUGS (1)
  1. EFFEXOR XR [Suspect]
     Active Substance: VENLAFAXINE HYDROCHLORIDE
     Dosage: UNK
     Dates: start: 1990

REACTIONS (6)
  - Abnormal dreams [Unknown]
  - Sleep disorder [Unknown]
  - Impaired work ability [Unknown]
  - Cognitive disorder [Unknown]
  - Dizziness [Unknown]
  - Disturbance in attention [Unknown]
